FAERS Safety Report 13129850 (Version 2)
Quarter: 2017Q1

REPORT INFORMATION
  Report Type: Spontaneous
  Country: JP (occurrence: JP)
  Receive Date: 20170119
  Receipt Date: 20170120
  Transmission Date: 20170428
  Serious: Yes (Hospitalization)
  Sender: FDA-Public Use
  Company Number: PHJP2017JP001336

PATIENT
  Sex: Female

DRUGS (3)
  1. TRAZODONE [Interacting]
     Active Substance: TRAZODONE HYDROCHLORIDE
     Indication: PRODUCT USED FOR UNKNOWN INDICATION
     Dosage: 60 DF (25 MG EACH)
     Route: 048
  2. TEGRETOL [Suspect]
     Active Substance: CARBAMAZEPINE
     Indication: PRODUCT USED FOR UNKNOWN INDICATION
     Dosage: 30 DF (200 MG EACH)
     Route: 048
  3. SERENAMIN [Suspect]
     Active Substance: DIAZEPAM
     Indication: PRODUCT USED FOR UNKNOWN INDICATION
     Dosage: 120 DF (2 MG EACH)
     Route: 048

REACTIONS (5)
  - Intentional overdose [Unknown]
  - Intentional overdose [None]
  - Toxicity to various agents [Unknown]
  - Altered state of consciousness [Unknown]
  - Drug level increased [Unknown]
